FAERS Safety Report 4327933-9 (Version None)
Quarter: 2004Q1

REPORT INFORMATION
  Report Type: 
  Country: None (occurrence: None)
  Receive Date: 20040325
  Receipt Date: 20040315
  Transmission Date: 20041129
  Serious: Yes (Disabling)
  Sender: FDA-Public Use
  Company Number: 2004CG00122

PATIENT
  Age: 54 Year
  Sex: Female
  Weight: 67 kg

DRUGS (4)
  1. ZOMIG [Suspect]
     Indication: MIGRAINE
     Dates: start: 20020101, end: 20031229
  2. ZOMIG [Suspect]
     Indication: MIGRAINE
     Dosage: 2.5 MG DAILY PO
     Route: 048
     Dates: start: 20031229, end: 20040103
  3. LUTERAN [Concomitant]
  4. ESTREVA [Concomitant]

REACTIONS (3)
  - NECROSIS [None]
  - RAYNAUD'S PHENOMENON [None]
  - SKIN ULCER [None]
